FAERS Safety Report 16072032 (Version 1)
Quarter: 2019Q1

REPORT INFORMATION
  Report Type: Spontaneous
  Country: US (occurrence: US)
  Receive Date: 20190314
  Receipt Date: 20190314
  Transmission Date: 20190418
  Serious: No
  Sender: FDA-Public Use
  Company Number: US-TITAN PHARMACEUTICALS-2018TAN00125

PATIENT
  Sex: Male

DRUGS (2)
  1. PROBUPHINE [Suspect]
     Active Substance: BUPRENORPHINE HYDROCHLORIDE
     Dosage: 4 DOSAGE UNITS, ONCE IN ARM
     Route: 059
  2. PROBUPHINE [Suspect]
     Active Substance: BUPRENORPHINE HYDROCHLORIDE
     Dosage: 4 DOSAGE UNITS, ONCE IN OTHER ARM
     Route: 059

REACTIONS (4)
  - Malaise [Unknown]
  - Incorrect product administration duration [Not Recovered/Not Resolved]
  - Incorrect dose administered [Not Recovered/Not Resolved]
  - Dizziness [Unknown]
